FAERS Safety Report 17022396 (Version 1)
Quarter: 2019Q4

REPORT INFORMATION
  Report Type: Spontaneous
  Country: US (occurrence: US)
  Receive Date: 20191112
  Receipt Date: 20191112
  Transmission Date: 20200122
  Serious: Yes (Other)
  Sender: FDA-Public Use
  Company Number: US-ACTELION-A-NJ2019-198000

PATIENT
  Sex: Female
  Weight: 76.19 kg

DRUGS (1)
  1. UPTRAVI [Suspect]
     Active Substance: SELEXIPAG
     Indication: PULMONARY ARTERIAL HYPERTENSION
     Dosage: 1000 MCG, BID
     Route: 048

REACTIONS (5)
  - Cough [Unknown]
  - Secretion discharge [Unknown]
  - Oropharyngeal surgery [Unknown]
  - Pharyngitis [Unknown]
  - Pharyngeal disorder [Unknown]
